FAERS Safety Report 8322056-6 (Version None)
Quarter: 2012Q2

REPORT INFORMATION
  Report Type: 
  Country: None (occurrence: None)
  Receive Date: 20120430
  Receipt Date: 20120423
  Transmission Date: 20120825
  Serious: Yes (Other)
  Sender: FDA-Public Use
  Company Number: CA-ROCHE-1062138

PATIENT
  Age: 3 Year
  Sex: Female
  Weight: 16.798 kg

DRUGS (4)
  1. TAMIFLU [Suspect]
     Indication: PRODUCT USED FOR UNKNOWN INDICATION
     Route: 048
  2. ACETAMINOPHEN [Concomitant]
     Route: 048
  3. CEFUROXIME [Concomitant]
     Route: 042
  4. CEFPROZIL [Concomitant]
     Route: 048

REACTIONS (4)
  - RASH [None]
  - ERYTHEMA [None]
  - URTICARIA [None]
  - PALLOR [None]
